FAERS Safety Report 8064503-3 (Version None)
Quarter: 2012Q1

REPORT INFORMATION
  Report Type: 
  Country: None (occurrence: None)
  Receive Date: 20120123
  Receipt Date: 20120112
  Transmission Date: 20120608
  Serious: Yes (Other)
  Sender: FDA-Public Use
  Company Number: US-ASTRAZENECA-2010SE24654

PATIENT
  Age: 57 Year
  Sex: Female

DRUGS (3)
  1. VICODIN [Concomitant]
  2. NEXIUM [Suspect]
     Route: 048
  3. VALIUM [Concomitant]

REACTIONS (8)
  - TEMPOROMANDIBULAR JOINT SYNDROME [None]
  - DRUG DOSE OMISSION [None]
  - TRISMUS [None]
  - GASTROOESOPHAGEAL REFLUX DISEASE [None]
  - GASTRIC DISORDER [None]
  - PAIN IN JAW [None]
  - ROAD TRAFFIC ACCIDENT [None]
  - HEAD INJURY [None]
